FAERS Safety Report 22290711 (Version 7)
Quarter: 2023Q4

REPORT INFORMATION
  Report Type: Report from Study
  Country: PT (occurrence: PT)
  Receive Date: 20230505
  Receipt Date: 20231211
  Transmission Date: 20240109
  Serious: Yes (Other)
  Sender: FDA-Public Use
  Company Number: PT-ABBVIE-4754118

PATIENT
  Age: 77 Year
  Sex: Female

DRUGS (20)
  1. CARBIDOPA\LEVODOPA [Suspect]
     Active Substance: CARBIDOPA\LEVODOPA
     Indication: Parkinson^s disease
     Dosage: 20 MG + 5 MG (VIA PEG)
     Route: 050
     Dates: start: 20231026, end: 202311
  2. CARBIDOPA\LEVODOPA [Suspect]
     Active Substance: CARBIDOPA\LEVODOPA
     Dosage: 20 MG + 5 MG
     Route: 050
     Dates: start: 202311
  3. CARBIDOPA\LEVODOPA [Suspect]
     Active Substance: CARBIDOPA\LEVODOPA
     Dosage: 20 MG + 5 MG (VIA PEG)
     Route: 050
     Dates: start: 20230330, end: 20231026
  4. CARBIDOPA\LEVODOPA [Suspect]
     Active Substance: CARBIDOPA\LEVODOPA
     Dosage: 20 MG + 5 MG (VIA PEG)
     Route: 050
  5. CARBIDOPA\LEVODOPA [Suspect]
     Active Substance: CARBIDOPA\LEVODOPA
     Dosage: 20 MG + 5 MG, MORN:20CC;MAINT:3CC/H;EXTR:1CC
     Route: 050
     Dates: start: 20220510
  6. CARBIDOPA\LEVODOPA [Suspect]
     Active Substance: CARBIDOPA\LEVODOPA
     Dosage: 20 MG + 5 MG (VIA PEG), MORN:20CC;MAINT:11.8CC/H;EXTR:4CC, FIRST ADMIN DATE: 2023
     Route: 050
     Dates: start: 2023, end: 20230330
  7. PANTOPRAZOLE [Concomitant]
     Active Substance: PANTOPRAZOLE
     Indication: Product used for unknown indication
     Dosage: 1 TABLET, ?FORM STRENGTH:20 MILLIGRAM, ?FREQUENCY TEXT: AT FASTING, ?START DATE TEXT:BEFORE DUODOPA
     Route: 048
  8. ALPRAZOLAM [Concomitant]
     Active Substance: ALPRAZOLAM
     Indication: Product used for unknown indication
     Dosage: FORM STRENGTH: 0.5 MILLIGRAM, ?2 TABLET?FREQUENCY TEXT: AT 11AM AND 4PM, ?START DATE TEXT: BEFORE...
     Route: 048
  9. ACETYLCYSTEINE [Concomitant]
     Active Substance: ACETYLCYSTEINE
     Indication: Product used for unknown indication
     Dosage: 1 TABLET
     Route: 048
     Dates: start: 20220617, end: 20220619
  10. BISOPROLOL [Concomitant]
     Active Substance: BISOPROLOL\BISOPROLOL FUMARATE
     Indication: Product used for unknown indication
     Dosage: 0.5 TABLET,?FORM STRENGTH : 5 MILLIGRAM, ?FREQUENCY TEXT: AT LUNCH, ?START DATE TEXT:BEFORE DUODOPA
     Route: 048
  11. DOMPERIDONE [Concomitant]
     Active Substance: DOMPERIDONE
     Indication: Product used for unknown indication
     Dosage: FORM STRENGTH: 30 MILLILITER, ?FREQUENCY TEXT:AT THREE MEALS, ?START DATE TEXT:BEFORE DUODOPA
     Route: 048
  12. SEROQUEL [Concomitant]
     Active Substance: QUETIAPINE FUMARATE
     Indication: Product used for unknown indication
     Dosage: 1 TABLET, SEROQUEL SR 50 (QUETIAPINE), ?FREQUENCY TEXT:AT DINNER, ?START DATE TEXT:BEFORE DUODOPA
     Route: 048
  13. MIRTAZAPINE [Concomitant]
     Active Substance: MIRTAZAPINE
     Indication: Product used for unknown indication
     Dosage: 1 TABLET, ? FORM STRENGTH : 45 MILLIGRAM, ? FREQUENCY TEXT:AT LUNCH, ? START DATE TEXT:BEFORE DUO...
     Route: 048
  14. LORAZEPAM [Concomitant]
     Active Substance: LORAZEPAM
     Indication: Product used for unknown indication
     Dosage: TIME INTERVAL: AS NECESSARY: 1.5 TABLET, ?FOR STRENGTH : 2.5 MILLIGRAM, ?FREQUENCY TEXT:AT BEDTIM...
     Route: 048
  15. ATROVENT [Concomitant]
     Active Substance: IPRATROPIUM BROMIDE
     Indication: Product used for unknown indication
     Dosage: 6 PUFF,  ?START DATE TEXT: BEFORE DUODOPA
     Route: 048
     Dates: end: 202206
  16. FUROSEMIDE [Concomitant]
     Active Substance: FUROSEMIDE
     Indication: Product used for unknown indication
     Dosage: 0.5 TABLET, ?FORM STRENGTH:40 MILLIGRAM, ?FREQUENCY TEXT: AT BREAKFAST, ?START DATE TEXT: BEFORE ...
     Route: 048
  17. CYANOCOBALAMIN\FOLIC ACID\PYRIDOXINE HYDROCHLORIDE [Concomitant]
     Active Substance: CYANOCOBALAMIN\FOLIC ACID\PYRIDOXINE HYDROCHLORIDE
     Indication: Product used for unknown indication
     Dosage: FORM STRENGTH: 5 MILLIGRAM,?1 TABLET, ?FREQUENCY TEXT : AT LUNCH, ?START DATE TEXT : BEFORE DUODOPA
     Route: 048
  18. Vigantol [Concomitant]
     Indication: Product used for unknown indication
     Dosage: 5 DROP,?FREQUENCY TEXT: AT BREAKFAST, ?START DATE TEXT: BEFORE DUODOPA
     Route: 065
  19. BENSERAZIDE HYDROCHLORIDE\LEVODOPA [Concomitant]
     Active Substance: BENSERAZIDE HYDROCHLORIDE\LEVODOPA
     Indication: Parkinson^s disease
     Dosage: 1 TABLET, FREQUENCY TEXT: AT BEDTIME
     Route: 048
     Dates: start: 20220617
  20. ATORVASTATIN [Concomitant]
     Active Substance: ATORVASTATIN
     Indication: Product used for unknown indication
     Dosage: 1 TABLET, ?FORM STRENGTH UNITS: 20 MILLIGRAM, ?FREQUENCY TEXT: AT DINNER, ?START DATE TEXT: BEFOR...
     Route: 048

REACTIONS (1)
  - Decubitus ulcer [Recovering/Resolving]

NARRATIVE: CASE EVENT DATE: 20230401
